FAERS Safety Report 8522150 (Version 4)
Quarter: 2013Q1

REPORT INFORMATION
  Report Type: Spontaneous
  Country: US (occurrence: None)
  Receive Date: 20120409
  Receipt Date: 20121218
  Transmission Date: 20140127
  Serious: Yes (Other)
  Sender: FDA-Public Use
  Company Number: 2012-001286

PATIENT
  Age: 43 Year
  Sex: Male
  Weight: 107.9 kg

DRUGS (31)
  1. ACTONEL [Suspect]
     Indication: OSTEOPENIA
     Dosage: 150 MG ONCE MONTHLY, ORAL
     Route: 048
     Dates: start: 20090323, end: 20110711
  2. ACTONEL [Suspect]
     Indication: OSTEOPENIA
     Dosage: 35 MG ONCE WEEKLY, ORAL
     Route: 048
     Dates: end: 20090323
  3. XYZAL [Concomitant]
  4. MUCINEX [Concomitant]
  5. SUDAFED /00076302/ (PSEUDOEPHEDRINE HYDROCHLORIDE) [Concomitant]
  6. HYDROCORTONE [Concomitant]
  7. PROTONIX (PANTOPRAZOLE SODIUM SESQUIHYDRATE) [Concomitant]
  8. MAXALT MLT (RIZATRIPTAN BENZOATE) [Concomitant]
  9. ALBUTEROL SULFATE [Concomitant]
  10. VIAGRA [Concomitant]
  11. ANDROGEL [Concomitant]
  12. VITAMIN D /00318501/  (COLECALCIFEROL) [Concomitant]
  13. CALCIUM CARBONATE [Concomitant]
  14. ZOLOFT (SERTRALINE HYDROCHLORIDE) [Concomitant]
  15. IBUPROFEN (IBUPROFEN) [Concomitant]
  16. CENTRUM SILVER /01292501/ (ASCORBIC ACID, CALCIUM, MINERALS NOS, RETINOL, TOCOPHERYL ACETATE, VITAMIN B NOS, VITAMINS NOS, ZINC) [Concomitant]
  17. PREDNISONE (PREDNISONE) [Concomitant]
  18. NASONEX (MOMETASONE FUROATE) [Concomitant]
  19. CIPROFLOXACIN (CIPROFLOXACIN) [Concomitant]
  20. DOXYCYCLINE (DOXYCYCLINE) [Concomitant]
  21. ROBITUSSIN DM /00979901/ (DEXTROMETHORPHAN HYDROBROMIDE, GUAIFENESIN) [Concomitant]
  22. AZITHROMYCIN (AZITHROMYCIN) [Concomitant]
  23. CLINDAMYCIN (CLINDAMYCIN) [Concomitant]
  24. FLAGYL /00012501/ (METRONIDAZOLE) [Concomitant]
  25. BIAXIN (CLARITHROMYCIN) [Concomitant]
  26. KEFLEX /00145501/ (CEFALEXIN) [Concomitant]
  27. CIALIS (TADALAFIL) [Concomitant]
  28. KETOCONAZOLE (KETOCONAZOLE) [Concomitant]
  29. NEXIUM /01479302/ (ESOMEPRAZOLE MAGNESIUM) [Concomitant]
  30. OMNICEF /01130201/ (CEFDINIR) [Concomitant]
  31. FACTIVE (GEMIFLOXACIN MESILATE) [Concomitant]

REACTIONS (33)
  - Arthropathy [None]
  - Medical device complication [None]
  - Arthritis infective [None]
  - Irritable bowel syndrome [None]
  - Bone loss [None]
  - Abdominal discomfort [None]
  - Fibromyalgia [None]
  - Spinal disorder [None]
  - Crohn^s disease [None]
  - Incorrect drug administration duration [None]
  - Gastric disorder [None]
  - Infection [None]
  - Venous insufficiency [None]
  - Pain in extremity [None]
  - Sensation of heaviness [None]
  - Oedema peripheral [None]
  - Mobility decreased [None]
  - Hypoaesthesia [None]
  - Paraesthesia [None]
  - Tenderness [None]
  - Skin discolouration [None]
  - Arthralgia [None]
  - Rash erythematous [None]
  - Rash pruritic [None]
  - Chills [None]
  - Bone pain [None]
  - Abdominal distension [None]
  - Hot flush [None]
  - Flatulence [None]
  - Abdominal pain lower [None]
  - Diarrhoea [None]
  - Haemorrhoids [None]
  - Arteritis [None]
